FAERS Safety Report 5683073-8 (Version None)
Quarter: 2008Q1

REPORT INFORMATION
  Report Type: 
  Country: None (occurrence: None)
  Receive Date: 20080327
  Receipt Date: 20080325
  Transmission Date: 20080703
  Serious: Yes (Hospitalization)
  Sender: FDA-Public Use
  Company Number: GB-ALLERGAN-0803511US

PATIENT
  Sex: Male

DRUGS (10)
  1. PREDNISOLONE ACETATE [Suspect]
     Indication: DRUG USE FOR UNKNOWN INDICATION
  2. ACETYLSALICYLIC ACID SRT [Suspect]
     Indication: DRUG USE FOR UNKNOWN INDICATION
  3. AQUEOUS CREAM [Suspect]
     Indication: DRUG USE FOR UNKNOWN INDICATION
  4. ATENOLOL [Suspect]
     Indication: DRUG USE FOR UNKNOWN INDICATION
  5. BENDROFLUMETHIAZIDE [Suspect]
     Indication: DRUG USE FOR UNKNOWN INDICATION
  6. CHLORPHENIRAMINE MALEATE [Suspect]
     Indication: DRUG USE FOR UNKNOWN INDICATION
  7. DIGOXIN [Suspect]
     Indication: DRUG USE FOR UNKNOWN INDICATION
  8. LACTULOSE [Suspect]
     Indication: DRUG USE FOR UNKNOWN INDICATION
     Dosage: 10 ML, BID
     Route: 048
  9. URSODIOL [Suspect]
     Indication: DRUG USE FOR UNKNOWN INDICATION
  10. AQUEOUS CREAM WITH METHOL [Suspect]
     Indication: DRUG USE FOR UNKNOWN INDICATION

REACTIONS (1)
  - JAUNDICE [None]
